FAERS Safety Report 9827474 (Version 2)
Quarter: 2014Q1

REPORT INFORMATION
  Report Type: Spontaneous
  Country: US (occurrence: US)
  Receive Date: 20140117
  Receipt Date: 20140207
  Transmission Date: 20141002
  Serious: Yes (Hospitalization)
  Sender: FDA-Public Use
  Company Number: US-009507513-1401USA007362

PATIENT
  Age: 42 Year
  Sex: Male

DRUGS (4)
  1. AMITRIPTYLINE HYDROCHLORIDE [Suspect]
     Route: 048
  2. BUPRENORPHINE HYDROCHLORIDE (+) NALOXONE HYDROCHLORIDE [Concomitant]
  3. FLUOXETINE [Concomitant]
  4. BUSPIRONE HYDROCHLORIDE [Concomitant]

REACTIONS (2)
  - Toxicity to various agents [Recovered/Resolved]
  - Brugada syndrome [Recovered/Resolved]
